FAERS Safety Report 25713921 (Version 1)
Quarter: 2025Q3

REPORT INFORMATION
  Report Type: Spontaneous
  Country: CN (occurrence: CN)
  Receive Date: 20250822
  Receipt Date: 20250822
  Transmission Date: 20251021
  Serious: Yes (Other)
  Sender: QILU PHARMACEUTICAL
  Company Number: CN-QILU PHARMACEUTICAL CO.LTD.-QLU-000210-2025

PATIENT
  Age: 53 Year
  Sex: Female

DRUGS (4)
  1. CISPLATIN [Suspect]
     Active Substance: CISPLATIN
     Indication: Osteosarcoma metastatic
     Route: 065
     Dates: start: 2022, end: 2022
  2. DOXORUBICIN [Suspect]
     Active Substance: DOXORUBICIN
     Indication: Osteosarcoma metastatic
     Route: 065
     Dates: start: 2022, end: 2022
  3. EPIRUBICIN [Suspect]
     Active Substance: EPIRUBICIN
     Indication: Osteosarcoma metastatic
     Route: 065
     Dates: start: 2022, end: 2022
  4. IFOSFAMIDE [Suspect]
     Active Substance: IFOSFAMIDE
     Indication: Osteosarcoma metastatic
     Route: 065
     Dates: start: 2022, end: 2022

REACTIONS (3)
  - Streptococcal sepsis [Recovered/Resolved]
  - Myelosuppression [Recovered/Resolved]
  - Off label use [Recovered/Resolved]

NARRATIVE: CASE EVENT DATE: 20220101
